FAERS Safety Report 6610457-3 (Version None)
Quarter: 2010Q1

REPORT INFORMATION
  Report Type: 
  Country: None (occurrence: None)
  Receive Date: 20100302
  Receipt Date: 20100222
  Transmission Date: 20100710
  Serious: Yes (Other)
  Sender: FDA-Public Use
  Company Number: US-BAXTER-2010BH004678

PATIENT
  Age: 64 Year
  Sex: Male

DRUGS (1)
  1. HEPARIN SODIUM INJECTION [Suspect]
     Indication: CARDIOPULMONARY BYPASS
     Route: 042

REACTIONS (1)
  - HEPARIN-INDUCED THROMBOCYTOPENIA [None]
